FAERS Safety Report 13015790 (Version 1)
Quarter: 2016Q4

REPORT INFORMATION
  Report Type: Spontaneous
  Country: AU (occurrence: AU)
  Receive Date: 20161212
  Receipt Date: 20161212
  Transmission Date: 20170207
  Serious: Yes (Life-Threatening, Hospitalization)
  Sender: FDA-Public Use
  Company Number: AU-ACCORD-046520

PATIENT
  Age: 63 Year
  Sex: Male

DRUGS (12)
  1. FENOFIBRATE. [Concomitant]
     Active Substance: FENOFIBRATE
  2. THYROXINE [Concomitant]
     Active Substance: LEVOTHYROXINE
     Dosage: THYROXINE DOSE ALTERNATING EACH DAY?BETWEEN 150 AND 200 MG
  3. ATENOLOL/ATENOLOL HYDROCHLORIDE [Concomitant]
  4. PANTOPRAZOLE [Concomitant]
     Active Substance: PANTOPRAZOLE SODIUM
  5. IRBESARTAN. [Concomitant]
     Active Substance: IRBESARTAN
  6. HYDROCHLOROTHIAZIDE. [Concomitant]
     Active Substance: HYDROCHLOROTHIAZIDE
  7. ATORVASTATIN/ATORVASTATIN CALCIUM [Concomitant]
  8. CLOPIDOGREL [Suspect]
     Active Substance: CLOPIDOGREL BISULFATE
     Indication: PRODUCT USED FOR UNKNOWN INDICATION
  9. TAMSULOSIN/TAMSULOSIN HYDROCHLORIDE [Concomitant]
  10. LERCANIDIPINE/LERCANIDIPINE HYDROCHLORIDE [Concomitant]
  11. MOXONIDINE [Concomitant]
     Active Substance: MOXONIDINE
  12. METFORMIN [Concomitant]
     Active Substance: METFORMIN HYDROCHLORIDE

REACTIONS (4)
  - Acute kidney injury [Recovered/Resolved]
  - Renal haemorrhage [Recovering/Resolving]
  - Hypovolaemic shock [Recovering/Resolving]
  - Haemoglobin decreased [Recovered/Resolved]
